FAERS Safety Report 4886588-5 (Version None)
Quarter: 2006Q1

REPORT INFORMATION
  Report Type: 
  Country: None (occurrence: None)
  Receive Date: 20060120
  Receipt Date: 20060105
  Transmission Date: 20060701
  Serious: Yes (Hospitalization, Other)
  Sender: FDA-Public Use
  Company Number: PHEH2006US00543

PATIENT
  Age: 41 Year
  Sex: Female
  Weight: 74.376 kg

DRUGS (9)
  1. LOTENSIN [Suspect]
     Indication: HYPERTENSION
     Dosage: 40 MG, QD
     Dates: start: 20040209
  2. LOTENSIN [Suspect]
     Dosage: 40 MG, QD
     Dates: start: 20050301
  3. FUROSEMIDE [Concomitant]
     Dosage: 40 MG, BID
  4. MULTIVITAMIN [Concomitant]
  5. ZYRTEC [Concomitant]
  6. AMITRIPTYLINE HCL [Concomitant]
     Dosage: 25 MG, PRN
  7. INSULIN [Concomitant]
  8. NORVASC [Concomitant]
     Dosage: 5 MG, QD
  9. LANTUS [Concomitant]

REACTIONS (18)
  - AMPUTATION [None]
  - ANAEMIA OF CHRONIC DISEASE [None]
  - BLOOD CREATININE INCREASED [None]
  - BLOOD GLUCOSE INCREASED [None]
  - BLOOD PRESSURE INADEQUATELY CONTROLLED [None]
  - BLOOD PRESSURE SYSTOLIC INCREASED [None]
  - BLOOD UREA INCREASED [None]
  - CONSTIPATION [None]
  - CREATININE RENAL CLEARANCE DECREASED [None]
  - DERMATITIS ATOPIC [None]
  - DIABETIC RETINOPATHY [None]
  - HAEMOGLOBIN DECREASED [None]
  - IMPAIRED HEALING [None]
  - IRON DEFICIENCY ANAEMIA [None]
  - NEUROPATHIC ARTHROPATHY [None]
  - RENAL FAILURE CHRONIC [None]
  - SKIN LESION [None]
  - SKIN ULCER [None]
